FAERS Safety Report 24384953 (Version 1)
Quarter: 2024Q3

REPORT INFORMATION
  Report Type: Spontaneous
  Country: US (occurrence: None)
  Receive Date: 20240930
  Receipt Date: 20240930
  Transmission Date: 20241017
  Serious: Yes (Hospitalization, Other)
  Sender: Public
  Company Number: None

PATIENT
  Age: 33 Year
  Sex: Male
  Weight: 56.2 kg

DRUGS (5)
  1. OXYMETHOLONE [Suspect]
     Active Substance: OXYMETHOLONE
  2. EXEMESTANE [Suspect]
     Active Substance: EXEMESTANE
  3. ZOSYN [Concomitant]
     Active Substance: PIPERACILLIN SODIUM\TAZOBACTAM SODIUM
     Dates: start: 20240924, end: 20240928
  4. CEFEPIME [Concomitant]
     Active Substance: CEFEPIME HYDROCHLORIDE
     Dates: start: 20240928
  5. FLAGYL [Concomitant]
     Active Substance: METRONIDAZOLE\METRONIDAZOLE HYDROCHLORIDE
     Dates: start: 20240928

REACTIONS (6)
  - Osteomyelitis [None]
  - Depressed level of consciousness [None]
  - Sepsis [None]
  - Product use issue [None]
  - Product packaging issue [None]
  - Product identification number issue [None]

NARRATIVE: CASE EVENT DATE: 20240929
